FAERS Safety Report 20757013 (Version 1)
Quarter: 2022Q2

REPORT INFORMATION
  Report Type: Spontaneous
  Country: US (occurrence: US)
  Receive Date: 20220427
  Receipt Date: 20220427
  Transmission Date: 20220721
  Serious: No
  Sender: FDA-Public Use
  Company Number: US-PFIZER INC-202101245136

PATIENT
  Age: 59 Year
  Sex: Female

DRUGS (2)
  1. CRIZOTINIB [Suspect]
     Active Substance: CRIZOTINIB
     Indication: Lung adenocarcinoma
     Dosage: 250 MG TWICE DAILY
  2. PEMBROLIZUMAB [Concomitant]
     Active Substance: PEMBROLIZUMAB
     Indication: Lung adenocarcinoma
     Dosage: SINGLE-AGENT

REACTIONS (8)
  - Fatigue [Unknown]
  - Nausea [Unknown]
  - Peripheral swelling [Unknown]
  - Visual impairment [Unknown]
  - Photopsia [Unknown]
  - Visual field defect [Unknown]
  - Off label use [Unknown]
  - Drug effective for unapproved indication [Unknown]
